FAERS Safety Report 21907925 (Version 2)
Quarter: 2023Q1

REPORT INFORMATION
  Report Type: Spontaneous
  Country: JP (occurrence: JP)
  Receive Date: 20230125
  Receipt Date: 20230320
  Transmission Date: 20230418
  Serious: Yes (Hospitalization)
  Sender: FDA-Public Use
  Company Number: JP-002147023-NVSJ2023JP000918

PATIENT
  Age: 46 Year
  Sex: Male
  Weight: 66 kg

DRUGS (11)
  1. NEORAL [Suspect]
     Active Substance: CYCLOSPORINE
     Indication: Pemphigus
     Dosage: 100 MG, QD
     Route: 048
     Dates: start: 20220913, end: 20220922
  2. NEORAL [Suspect]
     Active Substance: CYCLOSPORINE
     Dosage: 150 MG, QD
     Route: 048
     Dates: start: 20220923, end: 20220926
  3. IMURAN [Suspect]
     Active Substance: AZATHIOPRINE
     Indication: Pemphigus
     Dosage: 50 MG, QD
     Route: 048
     Dates: start: 20220804, end: 20220922
  4. PREDONINE [Concomitant]
     Active Substance: PREDNISOLONE
     Indication: Product used for unknown indication
     Dosage: UNK
     Route: 048
     Dates: start: 20220721
  5. PREDONINE [Concomitant]
     Active Substance: PREDNISOLONE
     Dosage: 75 MG
     Route: 048
     Dates: start: 20220802, end: 20221005
  6. PREDONINE [Concomitant]
     Active Substance: PREDNISOLONE
     Dosage: 45 MG
     Route: 048
     Dates: start: 20221006
  7. SULFAMETHOXAZOLE\TRIMETHOPRIM [Concomitant]
     Active Substance: SULFAMETHOXAZOLE\TRIMETHOPRIM
     Indication: Product used for unknown indication
     Dosage: UNK
     Route: 048
     Dates: start: 20220805
  8. NEXIUM [Concomitant]
     Active Substance: ESOMEPRAZOLE MAGNESIUM
     Indication: Product used for unknown indication
     Dosage: UNK
     Route: 048
     Dates: start: 20220812
  9. ALENDRONATE SODIUM [Concomitant]
     Active Substance: ALENDRONATE SODIUM
     Indication: Product used for unknown indication
     Dosage: UNK
     Route: 048
     Dates: start: 20220815
  10. AZUNOL [Concomitant]
     Indication: Product used for unknown indication
     Dosage: UNK
     Route: 049
     Dates: start: 20220922
  11. METHYLPREDNISOLONE SODIUM SUCCINATE [Concomitant]
     Active Substance: METHYLPREDNISOLONE SODIUM SUCCINATE
     Indication: Product used for unknown indication
     Route: 065

REACTIONS (1)
  - Hepatic function abnormal [Not Recovered/Not Resolved]

NARRATIVE: CASE EVENT DATE: 20220926
